FAERS Safety Report 6499152-1 (Version None)
Quarter: 2009Q4

REPORT INFORMATION
  Report Type: 
  Country: None (occurrence: None)
  Receive Date: 20091215
  Receipt Date: 20091208
  Transmission Date: 20100525
  Serious: Yes (Death, Other)
  Sender: FDA-Public Use
  Company Number: TR-ELI_LILLY_AND_COMPANY-TR200912001980

PATIENT
  Age: 65 Year
  Sex: Male

DRUGS (4)
  1. HUMALOG [Suspect]
     Indication: DIABETES MELLITUS
     Dosage: 10 IU, EACH MORNING
     Route: 058
     Dates: start: 20090401
  2. HUMALOG [Suspect]
     Dosage: 12 IU, DAILY (1/D)
     Route: 058
     Dates: start: 20090401
  3. HUMALOG [Suspect]
     Dosage: 12 IU, EACH EVENING
     Route: 058
     Dates: start: 20090401
  4. LANTUS [Concomitant]
     Indication: DIABETES MELLITUS
     Dosage: 25 IU, DAILY (1/D)
     Route: 058
     Dates: start: 20050101, end: 20091008

REACTIONS (2)
  - NEOPLASM PROGRESSION [None]
  - OCULAR NEOPLASM [None]
